FAERS Safety Report 5787651-7 (Version None)
Quarter: 2008Q2

REPORT INFORMATION
  Report Type: 
  Country: None (occurrence: None)
  Receive Date: 20080625
  Receipt Date: 20071012
  Transmission Date: 20081010
  Serious: No
  Sender: FDA-Public Use
  Company Number: US-ASTRAZENECA-2007UW23815

PATIENT
  Age: 12 Year
  Sex: Male

DRUGS (3)
  1. PULMICORT RESPULES [Suspect]
     Route: 055
  2. XOPENEX [Suspect]
  3. PARI NEBULIZER CUP [Suspect]

REACTIONS (3)
  - BLOOD PRESSURE DECREASED [None]
  - DIZZINESS [None]
  - DYSPNOEA [None]
